FAERS Safety Report 16328081 (Version 1)
Quarter: 2019Q2

REPORT INFORMATION
  Report Type: Spontaneous
  Country: ES (occurrence: ES)
  Receive Date: 20190518
  Receipt Date: 20190518
  Transmission Date: 20190711
  Serious: Yes (Hospitalization)
  Sender: FDA-Public Use
  Company Number: ES-AUROBINDO-AUR-APL-2019-025744

PATIENT

DRUGS (2)
  1. RIVOTRIL [Interacting]
     Active Substance: CLONAZEPAM
     Indication: BACK PAIN
     Dosage: DOSAGE UNIT FREQUENCY: 12.5 MG-MILLIGRAMS
     Route: 048
     Dates: start: 20170514, end: 20170515
  2. TRAMADOL. [Suspect]
     Active Substance: TRAMADOL
     Indication: BACK PAIN
     Dosage: DOSAGE UNIT FREQUENCY:150 MG-MILLIGRAMS DOSAGE PER DOSE:50 MG-MILLIGRAMS FREQUENCY UNIT: 1 DAY
     Route: 048
     Dates: start: 20170514, end: 20170515

REACTIONS (3)
  - Somnolence [Recovered/Resolved]
  - Fall [Recovered/Resolved]
  - Transcription medication error [Recovered/Resolved]

NARRATIVE: CASE EVENT DATE: 20170516
